FAERS Safety Report 4569445-3 (Version None)
Quarter: 2005Q1

REPORT INFORMATION
  Report Type: 
  Country: None (occurrence: None)
  Receive Date: 20050203
  Receipt Date: 20050201
  Transmission Date: 20050727
  Serious: Yes (Death)
  Sender: FDA-Public Use
  Company Number: PHNU2005DE00809

PATIENT
  Sex: Male
  Weight: 77 kg

DRUGS (3)
  1. FLUANXOL ^FISONS^ [Concomitant]
     Indication: SCHIZOPHRENIA
     Dosage: 0.6 ML/DAY
  2. TRUXAL [Concomitant]
     Indication: SCHIZOPHRENIA
  3. CLOZARIL [Suspect]
     Indication: SCHIZOPHRENIA
     Dosage: 700 MG/DAY
     Route: 048

REACTIONS (2)
  - DEATH [None]
  - DRUG LEVEL INCREASED [None]
